FAERS Safety Report 14498380 (Version 2)
Quarter: 2018Q1

REPORT INFORMATION
  Report Type: Spontaneous
  Country: IR (occurrence: IR)
  Receive Date: 20180207
  Receipt Date: 20180220
  Transmission Date: 20180509
  Serious: Yes (Hospitalization, Other)
  Sender: FDA-Public Use
  Company Number: IR-JNJFOC-20180136293

PATIENT
  Age: 69 Year
  Sex: Female
  Weight: 53 kg

DRUGS (5)
  1. PAMIDRONATE [Concomitant]
     Active Substance: PAMIDRONATE DISODIUM
     Indication: HYPERCALCAEMIA OF MALIGNANCY
     Route: 065
  2. LETROZOLE. [Concomitant]
     Active Substance: LETROZOLE
     Indication: BREAST CANCER
     Route: 065
  3. CAELYX [Suspect]
     Active Substance: DOXORUBICIN HYDROCHLORIDE
     Indication: BREAST CANCER
     Dosage: STRENGTH: 2 MG/ML
     Route: 042
     Dates: start: 20171002, end: 20171014
  4. EXEMESTANE. [Concomitant]
     Active Substance: EXEMESTANE
     Indication: BREAST CANCER
     Route: 065
  5. INFLUENZA VACCINE [Concomitant]
     Active Substance: INFLUENZA VIRUS VACCINE
     Indication: INFLUENZA
     Route: 065

REACTIONS (9)
  - Blister [Recovered/Resolved]
  - Erythema [Recovered/Resolved]
  - Incorrect dose administered [Unknown]
  - Skin swelling [Recovered/Resolved]
  - Off label use [Unknown]
  - Ulcer [Recovered/Resolved]
  - Skin disorder [Recovered/Resolved]
  - Skin exfoliation [Recovered/Resolved]
  - Hyperkeratosis [Recovered/Resolved]

NARRATIVE: CASE EVENT DATE: 20171002
